FAERS Safety Report 10384427 (Version 1)
Quarter: 2014Q1

REPORT INFORMATION
  Report Type: Spontaneous
  Country: US (occurrence: None)
  Receive Date: 20140306
  Receipt Date: 20140306
  Transmission Date: 20141002
  Serious: Yes (Other)
  Sender: FDA-Public Use
  Company Number: 163-21880-13072985

PATIENT
  Age: 77 Year
  Sex: Female
  Weight: 39.46 kg

DRUGS (2)
  1. REVLIMIB (LENALIDOMIDE) (25 MILLIGRAM, CAPSULES) [Suspect]
     Indication: PLASMA CELL MYELOMA
     Route: 048
     Dates: start: 20130701
  2. ZOMETA (ZOLEDRONIC ACID) [Suspect]
     Indication: BONE DISORDER
     Dosage: NOT PROVIDED, UNK

REACTIONS (3)
  - Somnolence [None]
  - Abdominal distension [None]
  - Fatigue [None]
